FAERS Safety Report 16832347 (Version 1)
Quarter: 2019Q4

REPORT INFORMATION
  Report Type: Spontaneous
  Country: US (occurrence: US)
  Receive Date: 20190920
  Receipt Date: 20190920
  Transmission Date: 20200122
  Serious: No
  Sender: FDA-Public Use
  Company Number: None

PATIENT
  Sex: Female

DRUGS (1)
  1. PREGABALIN 100MG [Suspect]
     Active Substance: PREGABALIN

REACTIONS (2)
  - Insomnia [None]
  - Oedema peripheral [None]
